FAERS Safety Report 6172264-8 (Version None)
Quarter: 2009Q2

REPORT INFORMATION
  Report Type: 
  Country: None (occurrence: None)
  Receive Date: 20090424
  Receipt Date: 20081210
  Transmission Date: 20091009
  Serious: No
  Sender: FDA-Public Use
  Company Number: ALL1-2008-03518

PATIENT
  Age: 45 Year
  Sex: Female
  Weight: 60.8 kg

DRUGS (2)
  1. VYVANSE [Suspect]
     Indication: ATTENTION DEFICIT/HYPERACTIVITY DISORDER
     Dosage: 70 MG, 1X/DAY;QD, ORAL
     Route: 048
     Dates: start: 20081210
  2. CYMBALTA [Concomitant]

REACTIONS (1)
  - FEELING JITTERY [None]
